FAERS Safety Report 14534902 (Version 7)
Quarter: 2024Q3

REPORT INFORMATION
  Report Type: Spontaneous
  Country: CA (occurrence: CA)
  Receive Date: 20180215
  Receipt Date: 20240911
  Transmission Date: 20241016
  Serious: Yes (Other)
  Sender: PFIZER
  Company Number: CA-PFIZER INC-2016424376

PATIENT
  Age: 49 Year
  Sex: Male

DRUGS (12)
  1. XELJANZ [Suspect]
     Active Substance: TOFACITINIB CITRATE
     Indication: Rheumatoid arthritis
     Dosage: 5 MG, 2X/DAY (BID)
     Route: 048
     Dates: start: 20160630, end: 201803
  2. XELJANZ [Suspect]
     Active Substance: TOFACITINIB CITRATE
     Dosage: 5 MG, 2X/DAY
     Route: 048
     Dates: start: 201811
  3. FOLIC ACID [Concomitant]
     Active Substance: FOLIC ACID
     Dosage: UNK
  4. JARDIANCE [Concomitant]
     Active Substance: EMPAGLIFLOZIN
     Dosage: 25 MG, DAILY (1 TABLET 1 TIME DAILY FOR 100 DAYS)
  5. JANUMET XR [Concomitant]
     Active Substance: METFORMIN HYDROCHLORIDE\SITAGLIPTIN PHOSPHATE
     Dosage: UNK, 2X/DAY(50-1,000 MG TABLET 1 TABLET(S) TWO TIMES DAILY FOR 100 DAY)
  6. MOMETASONE [Concomitant]
     Active Substance: MOMETASONE
     Dosage: 0.1 %, 1 APPLICATION 1 TIME DAILY, PRN FOR 100 DAYS
  7. METHOTREXATE [Concomitant]
     Active Substance: METHOTREXATE
     Indication: Rheumatoid arthritis
     Dosage: 1 DF, WEEKLY,  UNKNOWN DOSE
     Route: 065
     Dates: start: 201605, end: 20170316
  8. NAPROXEN [Concomitant]
     Active Substance: NAPROXEN
     Dosage: UNK
  9. RABEPRAZOLE SODIUM [Concomitant]
     Active Substance: RABEPRAZOLE SODIUM
     Dosage: 20 MG, DAILY,  EC 1 TABLET 1 TIME DAILY FOR 100 DAYS
  10. ROSUVASTATIN [Concomitant]
     Active Substance: ROSUVASTATIN\ROSUVASTATIN CALCIUM
     Dosage: 5 MG, 2X/DAY (1 TABLET 2 TIMES DAILY FOR 100 DAYS)
  11. VITAMIN B12 [Concomitant]
     Active Substance: CYANOCOBALAMIN
     Dosage: 1200 UG, DAILY(1 TABLET 1 TIME DAILY FOR 100 DAYS)
  12. VITAMIN D3 [Concomitant]
     Active Substance: CHOLECALCIFEROL
     Dosage: 1000 IU, 2X/DAY, 1000 IU 1 TABLET 2 TIMES DAILY FOR 90 DAYS

REACTIONS (10)
  - Hepatitis [Unknown]
  - Therapeutic product effect incomplete [Unknown]
  - Liver function test increased [Unknown]
  - Disease recurrence [Unknown]
  - Iron deficiency anaemia [Unknown]
  - Pruritus [Recovering/Resolving]
  - Eye infection [Unknown]
  - Antinuclear antibody positive [Unknown]
  - Arthritis [Unknown]
  - Rheumatoid factor positive [Unknown]

NARRATIVE: CASE EVENT DATE: 20180301
